FAERS Safety Report 25687422 (Version 1)
Quarter: 2025Q3

REPORT INFORMATION
  Report Type: Spontaneous
  Country: BR (occurrence: BR)
  Receive Date: 20250817
  Receipt Date: 20250817
  Transmission Date: 20251020
  Serious: Yes (Life-Threatening)
  Sender: SANDOZ
  Company Number: BR-002147023-NVSC2025BR128280

PATIENT
  Age: 66 Year
  Sex: Female

DRUGS (3)
  1. DENOSUMAB [Suspect]
     Active Substance: DENOSUMAB
     Indication: Invasive breast carcinoma
     Route: 065
  2. FULVESTRANT [Suspect]
     Active Substance: FULVESTRANT
     Indication: Invasive breast carcinoma
     Route: 065
  3. KISQALI [Suspect]
     Active Substance: RIBOCICLIB SUCCINATE
     Indication: Invasive breast carcinoma
     Dosage: 600 MG, QD
     Route: 065

REACTIONS (1)
  - Neutropenia [Not Recovered/Not Resolved]
